FAERS Safety Report 9648675 (Version 1)
Quarter: 2013Q4

REPORT INFORMATION
  Report Type: Spontaneous
  Country: US (occurrence: US)
  Receive Date: 20131028
  Receipt Date: 20131028
  Transmission Date: 20140711
  Serious: No
  Sender: FDA-Public Use
  Company Number: US-BAUSCH-BL-2012-001955

PATIENT
  Age: 69 Year
  Sex: Female

DRUGS (1)
  1. PROPARACAINE HYDROCHLORIDE OPHTHALMIC SOLUTION USP 0.5% [Suspect]
     Indication: OPHTHALMOLOGICAL EXAMINATION
     Dosage: 1 DROP IN EACH EYE; ONCE
     Route: 047
     Dates: start: 20070927, end: 20070927

REACTIONS (1)
  - Eye pruritus [Recovered/Resolved]
